FAERS Safety Report 4907307-X (Version None)
Quarter: 2006Q1

REPORT INFORMATION
  Report Type: 
  Country: None (occurrence: None)
  Receive Date: 20060208
  Receipt Date: 20060208
  Transmission Date: 20060701
  Serious: Yes (Hospitalization)
  Sender: FDA-Public Use
  Company Number: None

PATIENT
  Sex: Male
  Weight: 90 kg

DRUGS (6)
  1. ISOSORBIDE MONONITRATE [Suspect]
     Indication: CARDIAC FAILURE CONGESTIVE
     Dosage: ONCE DAILY ORAL TABLET
     Route: 048
  2. ISOSORBIDE MONONITRATE [Suspect]
     Indication: CORONARY ARTERY DISEASE
     Dosage: ONCE DAILY ORAL TABLET
     Route: 048
  3. ISOSORBIDE MONONITRATE [Suspect]
     Indication: HYPERTENSION
     Dosage: ONCE DAILY ORAL TABLET
     Route: 048
  4. FUROSEMIDE [Suspect]
  5. SPIRONOLACTONE [Suspect]
     Dosage: ONCE DAILY ORAL TABLET
     Route: 048
  6. METOPROLOL 25 MG [Suspect]

REACTIONS (6)
  - DIZZINESS [None]
  - FATIGUE [None]
  - HYPOTENSION [None]
  - ORAL INTAKE REDUCED [None]
  - VISUAL DISTURBANCE [None]
  - WEIGHT DECREASED [None]
